FAERS Safety Report 4558785-X (Version None)
Quarter: 2005Q1

REPORT INFORMATION
  Report Type: 
  Country: None (occurrence: None)
  Receive Date: 20050121
  Receipt Date: 20020605
  Transmission Date: 20050727
  Serious: Yes (Disabling)
  Sender: FDA-Public Use
  Company Number: GB-GLAXOSMITHKLINE-B0269965A

PATIENT
  Age: 42 Year
  Sex: Female
  Weight: 56 kg

DRUGS (4)
  1. ZIAGEN [Suspect]
     Indication: HIV INFECTION
     Dosage: 600MG PER DAY
     Route: 048
     Dates: start: 19990901, end: 20020501
  2. TRIZIVIR [Concomitant]
     Indication: HIV INFECTION
     Dosage: 1TAB TWICE PER DAY
     Route: 048
     Dates: start: 19990901
  3. CARBAMAZEPINE [Concomitant]
     Indication: EPILEPSY
     Dosage: 400MG PER DAY
     Route: 048
  4. MIRTAZAPINE [Concomitant]
     Indication: DEPRESSION
     Dosage: 15MG AT NIGHT
     Route: 048

REACTIONS (4)
  - DYSPHAGIA [None]
  - DYSPHONIA [None]
  - ODYNOPHAGIA [None]
  - PHARYNGOLARYNGEAL PAIN [None]
